FAERS Safety Report 5895884-4 (Version None)
Quarter: 2008Q3

REPORT INFORMATION
  Report Type: 
  Country: None (occurrence: None)
  Receive Date: 20080924
  Receipt Date: 20080917
  Transmission Date: 20090109
  Serious: Yes (Hospitalization)
  Sender: FDA-Public Use
  Company Number: FR-ABBOTT-08P-056-0476993-00

PATIENT
  Sex: Male

DRUGS (6)
  1. KALETRA [Suspect]
     Indication: HIV INFECTION
     Route: 048
     Dates: start: 20040101, end: 20080813
  2. KALETRA [Suspect]
     Dates: start: 20080825
  3. DOCETAXEL [Interacting]
     Indication: LUNG NEOPLASM MALIGNANT
     Route: 042
     Dates: start: 20080801, end: 20080801
  4. BACTRIM [Concomitant]
     Indication: DRUG USE FOR UNKNOWN INDICATION
  5. BACTRIM [Concomitant]
     Dates: start: 20080825
  6. TRUVADA [Concomitant]
     Indication: HIV INFECTION
     Route: 048
     Dates: start: 20080825

REACTIONS (8)
  - DIARRHOEA [None]
  - DRUG INTERACTION [None]
  - MYALGIA [None]
  - NEUTROPENIA [None]
  - PYREXIA [None]
  - RASH [None]
  - RASH SCARLATINIFORM [None]
  - SKIN DISORDER [None]
